FAERS Safety Report 6696019-0 (Version None)
Quarter: 2010Q2

REPORT INFORMATION
  Report Type: 
  Country: None (occurrence: None)
  Receive Date: 20100419
  Receipt Date: 20090826
  Transmission Date: 20101027
  Serious: Yes (Hospitalization, Other)
  Sender: FDA-Public Use
  Company Number: 1-19653922

PATIENT
  Sex: Male

DRUGS (1)
  1. AMMONUL [Suspect]
     Indication: ORNITHINE TRANSCARBAMOYLASE DEFICIENCY
     Dosage: INTRAVENOUS
     Route: 042
     Dates: start: 20090801

REACTIONS (1)
  - LACTIC ACIDOSIS [None]
